FAERS Safety Report 25928292 (Version 1)
Quarter: 2025Q4

REPORT INFORMATION
  Report Type: Spontaneous
  Country: US (occurrence: US)
  Receive Date: 20251016
  Receipt Date: 20251016
  Transmission Date: 20260117
  Serious: No
  Sender: TOLMAR
  Company Number: US-Tolmar-TLM-2025-07648

PATIENT

DRUGS (3)
  1. ELIGARD [Suspect]
     Active Substance: LEUPROLIDE ACETATE
     Indication: Product used for unknown indication
     Dosage: EXPIRATION DATES: DEC-2026; NOV-2026; 30-NOV-2026?SN: 1357726578888?GTIN: 00362935227106
  2. ELIGARD [Suspect]
     Active Substance: LEUPROLIDE ACETATE
     Dosage: REPLACEMENT DOSE
  3. DEVICE [Suspect]
     Active Substance: DEVICE
     Indication: Product used for unknown indication
     Dosage: EXPIRATION DATES: DEC-2026; NOV-2026; 30-NOV-2026?SN: 1357726578888?GTIN: 00362935227106

REACTIONS (1)
  - Intercepted product preparation error [Unknown]
